FAERS Safety Report 4330261-9 (Version None)
Quarter: 2004Q1

REPORT INFORMATION
  Report Type: 
  Country: None (occurrence: None)
  Receive Date: 20040329
  Receipt Date: 20040316
  Transmission Date: 20041129
  Serious: Yes (Life-Threatening)
  Sender: FDA-Public Use
  Company Number: 04H-122-0254064-00

PATIENT
  Age: 14 Year
  Sex: Female

DRUGS (3)
  1. PENTOTHAL [Suspect]
     Indication: INDUCTION OF ANAESTHESIA
     Dosage: 350 MG, SINGLE BOLUS, INTRAVENOUS BOLUS
     Route: 040
     Dates: start: 20040119, end: 20040119
  2. SUXAMETHONIUM CHLORIDE [Suspect]
     Indication: INDUCTION OF ANAESTHESIA
     Dosage: 6 5 MG, SINGLE BOLUS, INTRAVENOUS BOLUS
     Route: 040
     Dates: start: 20040119, end: 20040119
  3. FENTANYL CITRATE [Concomitant]

REACTIONS (4)
  - ANAPHYLACTIC REACTION [None]
  - FLUSHING [None]
  - HYPOTENSION [None]
  - TACHYCARDIA [None]
